FAERS Safety Report 7136448-4 (Version None)
Quarter: 2010Q4

REPORT INFORMATION
  Report Type: 
  Country: None (occurrence: None)
  Receive Date: 20101206
  Receipt Date: 20040715
  Transmission Date: 20110411
  Serious: Yes (Death)
  Sender: FDA-Public Use
  Company Number: DE-ACTELION-A-CH2004-06868

PATIENT
  Sex: Male

DRUGS (1)
  1. BOSENTAN TABLET 62.5 MG EU [Suspect]
     Indication: PULMONARY FIBROSIS
     Dosage: 62.5 MG, UNK
     Route: 048
     Dates: start: 20040301

REACTIONS (1)
  - DEATH [None]
